FAERS Safety Report 26060154 (Version 1)
Quarter: 2025Q4

REPORT INFORMATION
  Report Type: Other
  Country: US (occurrence: US)
  Receive Date: 20251118
  Receipt Date: 20251118
  Transmission Date: 20260117
  Serious: Yes (Other)
  Sender: NEUROCRINE BIOSCIENCES
  Company Number: US-NEUROCRINE BIOSCIENCES INC.-2025NBI13818

PATIENT
  Age: 62 Year
  Sex: Female

DRUGS (14)
  1. INGREZZA [Suspect]
     Active Substance: VALBENAZINE DITOSYLATE
     Indication: Tardive dyskinesia
     Dosage: 60 MILLIGRAM, QD
     Route: 048
     Dates: start: 20250703, end: 20251003
  2. INGREZZA [Suspect]
     Active Substance: VALBENAZINE DITOSYLATE
     Dosage: 40 MILLIGRAM, QD
     Route: 048
     Dates: start: 20250513, end: 20250602
  3. MIRTAZAPINE [Concomitant]
     Active Substance: MIRTAZAPINE
  4. OMEPRAZOLE [Concomitant]
     Active Substance: OMEPRAZOLE
  5. RESTASIS [Concomitant]
     Active Substance: CYCLOSPORINE
  6. CYANOCOBALAMIN [Concomitant]
     Active Substance: CYANOCOBALAMIN
  7. FLUTICASONE [Concomitant]
     Active Substance: FLUTICASONE
  8. IPRATROPIUM [Concomitant]
     Active Substance: IPRATROPIUM
  9. ONDANSETRON [Concomitant]
     Active Substance: ONDANSETRON
  10. PRAZOSIN [Concomitant]
     Active Substance: PRAZOSIN
  11. ROSUVASTATIN [Concomitant]
     Active Substance: ROSUVASTATIN
  12. UBRELVY [Concomitant]
     Active Substance: UBROGEPANT
  13. VITAMIN B COMPLEX [Concomitant]
     Active Substance: CYANOCOBALAMIN\DEXPANTHENOL\NIACINAMIDE\PYRIDOXINE HYDROCHLORIDE\RIBOFLAVIN 5^-PHOSPHATE SODIUM\THIA
  14. VITAMIN D3 [Concomitant]
     Active Substance: CHOLECALCIFEROL

REACTIONS (4)
  - Hallucination, visual [Recovered/Resolved]
  - Emergency care [Unknown]
  - Hyperhidrosis [Recovered/Resolved]
  - Respiratory tract infection viral [Unknown]

NARRATIVE: CASE EVENT DATE: 20251004
